FAERS Safety Report 4290576-X (Version None)
Quarter: 2004Q1

REPORT INFORMATION
  Report Type: 
  Country: None (occurrence: None)
  Receive Date: 20040209
  Receipt Date: 20040123
  Transmission Date: 20041129
  Serious: Yes (Hospitalization)
  Sender: FDA-Public Use
  Company Number: RENA-10872

PATIENT
  Age: 51 Year
  Sex: Male
  Weight: 55 kg

DRUGS (12)
  1. RENAGEL [Suspect]
     Indication: HYPERPHOSPHATAEMIA
     Dosage: 2 G DAILY PO
     Route: 048
     Dates: start: 20031104, end: 20040120
  2. NIFEDIPINE [Concomitant]
  3. VALSARTAN [Concomitant]
  4. ACETYLSALICYLIC ACID SRT [Concomitant]
  5. BENIDIPINE HYDROCHLORIDE [Concomitant]
  6. TEMOCAPRIL HYDROCHLORIDE [Concomitant]
  7. DOXAZOSIN MESYLATE [Concomitant]
  8. CALCITRIOL [Concomitant]
  9. ENALAPRIL MALEATE [Concomitant]
  10. DISOPYRAMIDE [Concomitant]
  11. AMLODIPINE BESYLATE [Concomitant]
  12. HERBAL EXTRACTS NOS [Concomitant]

REACTIONS (3)
  - ABDOMINAL PAIN [None]
  - ILEUS [None]
  - VOMITING [None]
